FAERS Safety Report 20093150 (Version 2)
Quarter: 2021Q4

REPORT INFORMATION
  Report Type: Spontaneous
  Country: JP (occurrence: JP)
  Receive Date: 20211120
  Receipt Date: 20211124
  Transmission Date: 20220303
  Serious: Yes (Other)
  Sender: FDA-Public Use
  Company Number: JP-MSD-M2021-27105

PATIENT
  Age: 8 Decade
  Sex: Male

DRUGS (3)
  1. KEYTRUDA [Suspect]
     Active Substance: PEMBROLIZUMAB
     Indication: Salivary gland cancer stage IV
     Dosage: 200 MILLIGRAM, Q3W
     Route: 041
  2. CISPLATIN [Suspect]
     Active Substance: CISPLATIN
     Indication: Salivary gland cancer stage IV
     Dosage: 80 MILLIGRAM/SQ. METER, QD, 4 WEEK INTERVALS
     Route: 041
     Dates: start: 20210817
  3. FLUOROURACIL [Suspect]
     Active Substance: FLUOROURACIL
     Indication: Salivary gland cancer stage IV
     Dosage: 800 MILLIGRAM/SQ. METER, QD, 4 DAYS/WEEK, 4 WEEK INTERVALS
     Route: 041
     Dates: start: 20210817

REACTIONS (1)
  - Myelosuppression [Recovering/Resolving]

NARRATIVE: CASE EVENT DATE: 20210818
